FAERS Safety Report 5506363-8 (Version None)
Quarter: 2007Q4

REPORT INFORMATION
  Report Type: 
  Country: None (occurrence: None)
  Receive Date: 20071101
  Receipt Date: 20071018
  Transmission Date: 20080405
  Serious: Yes (Hospitalization)
  Sender: FDA-Public Use
  Company Number: US021281

PATIENT
  Age: 28 Year
  Sex: Female

DRUGS (2)
  1. TRISENOX [Suspect]
     Indication: ACUTE PROMYELOCYTIC LEUKAEMIA
     Dosage: 10.05 MG QD INTRAVENOUS DRIP
     Route: 041
     Dates: start: 20070827, end: 20070831
  2. TRISENOX [Suspect]
     Indication: ACUTE PROMYELOCYTIC LEUKAEMIA
     Dosage: 10.05 MG QD INTRAVENOUS DRIP
     Route: 041
     Dates: start: 20070903, end: 20070907

REACTIONS (2)
  - NEUROPATHY PERIPHERAL [None]
  - PLEURISY [None]
